FAERS Safety Report 7336391-1 (Version None)
Quarter: 2011Q1

REPORT INFORMATION
  Report Type: 
  Country: None (occurrence: None)
  Receive Date: 20110307
  Receipt Date: 20110303
  Transmission Date: 20110831
  Serious: Yes (Death, Other)
  Sender: FDA-Public Use
  Company Number: US-AMGEN-USASP2011012448

PATIENT
  Age: 80 Year
  Sex: Male

DRUGS (3)
  1. CORTICOSTEROIDS [Concomitant]
  2. NPLATE [Suspect]
     Indication: IDIOPATHIC THROMBOCYTOPENIC PURPURA
     Dates: start: 20090909
  3. IVIGLOB-EX [Concomitant]

REACTIONS (2)
  - PRIMARY MEDIASTINAL LARGE B-CELL LYMPHOMA [None]
  - DEATH [None]
